FAERS Safety Report 10358117 (Version 4)
Quarter: 2015Q2

REPORT INFORMATION
  Report Type: Spontaneous
  Country: PT (occurrence: PT)
  Receive Date: 20140801
  Receipt Date: 20150427
  Transmission Date: 20150821
  Serious: Yes (Death)
  Sender: FDA-Public Use
  Company Number: PT-BAYER-2014-113945

PATIENT
  Age: 22 Year
  Sex: Female
  Weight: 56 kg

DRUGS (2)
  1. YASMIN [Suspect]
     Active Substance: DROSPIRENONE\ETHINYL ESTRADIOL
     Indication: ACNE
     Dosage: 1 DF, QD
     Route: 048
     Dates: start: 201202, end: 20140211
  2. YASMIN [Suspect]
     Active Substance: DROSPIRENONE\ETHINYL ESTRADIOL
     Indication: ORAL CONTRACEPTION

REACTIONS (6)
  - Cardio-respiratory arrest [Fatal]
  - Sudden death [Fatal]
  - Nausea [None]
  - Blood pressure decreased [None]
  - Pulmonary embolism [Fatal]
  - Intentional product misuse [None]

NARRATIVE: CASE EVENT DATE: 20140211
